FAERS Safety Report 16252066 (Version 1)
Quarter: 2019Q2

REPORT INFORMATION
  Report Type: Spontaneous
  Country: NZ (occurrence: NZ)
  Receive Date: 20190429
  Receipt Date: 20190429
  Transmission Date: 20190711
  Serious: Yes (Other)
  Sender: FDA-Public Use
  Company Number: NZ-UCBSA-2019013107

PATIENT
  Age: 36 Year
  Sex: Female

DRUGS (1)
  1. LEVRIX [Suspect]
     Active Substance: LEVOCETIRIZINE HYDROCHLORIDE
     Indication: RHINITIS ALLERGIC
     Dosage: 5 MILLIGRAM, ONCE DAILY (QD)
     Route: 048
     Dates: start: 20181005, end: 20181005

REACTIONS (3)
  - Chest discomfort [Unknown]
  - Dyspnoea [Unknown]
  - Fall [Unknown]

NARRATIVE: CASE EVENT DATE: 201810
